FAERS Safety Report 13636290 (Version 1)
Quarter: 2017Q2

REPORT INFORMATION
  Report Type: Spontaneous
  Country: US (occurrence: US)
  Receive Date: 20170531
  Receipt Date: 20170531
  Transmission Date: 20170830
  Serious: No
  Sender: FDA-Public Use
  Company Number: US-ASTELLAS-1806465

PATIENT
  Sex: Female
  Weight: 53.12 kg

DRUGS (1)
  1. TARCEVA [Suspect]
     Active Substance: ERLOTINIB HYDROCHLORIDE
     Indication: BRONCHIAL CARCINOMA
     Dosage: 1 TAB QD THEN INCREASE DOSE BY 25MG EVERY WEEK TO 150MG
     Route: 048
     Dates: start: 20160503

REACTIONS (1)
  - Rash [Unknown]
